FAERS Safety Report 7471045-2 (Version None)
Quarter: 2011Q2

REPORT INFORMATION
  Report Type: 
  Country: None (occurrence: None)
  Receive Date: 20110510
  Receipt Date: 20110503
  Transmission Date: 20111010
  Serious: Yes (Hospitalization)
  Sender: FDA-Public Use
  Company Number: US-PFIZER INC-2011095400

PATIENT
  Sex: Male
  Weight: 77.098 kg

DRUGS (3)
  1. SUTENT [Suspect]
     Indication: RENAL DISORDER
     Dosage: 37.5 MG, 1X/DAY (12.5 MG THREE ONE TIME A DAY)
     Route: 048
     Dates: start: 20091001
  2. GABAPENTIN [Concomitant]
     Indication: PAIN MANAGEMENT
     Dosage: 100 MG, 3X/DAY
     Route: 048
     Dates: start: 20000101
  3. ACETYLSALICYLIC ACID [Concomitant]
     Indication: MYOCARDIAL INFARCTION
     Dosage: 81 MG, 1X/DAY
     Route: 048
     Dates: start: 20080101

REACTIONS (1)
  - DIARRHOEA [None]
